FAERS Safety Report 25954476 (Version 1)
Quarter: 2025Q4

REPORT INFORMATION
  Report Type: Report from Study
  Country: CA (occurrence: CA)
  Receive Date: 20251024
  Receipt Date: 20251024
  Transmission Date: 20260119
  Serious: Yes (Hospitalization)
  Sender: ABBVIE
  Company Number: CA-ABBVIE-6515076

PATIENT
  Age: 31 Year
  Sex: Female

DRUGS (2)
  1. BOTOX [Suspect]
     Active Substance: ONABOTULINUMTOXINA
     Indication: Migraine
     Dosage: TIME INTERVAL: AS NECESSARY: DOSE: 200 UNIT, FREQUENCY: EVERY THREE MONTHS
     Route: 065
     Dates: start: 20220620, end: 20220620
  2. TOPAMAX [Concomitant]
     Active Substance: TOPIRAMATE
     Indication: Product used for unknown indication
     Dosage: ANTICONVULSANT

REACTIONS (3)
  - Spinal operation [Unknown]
  - Gait inability [Unknown]
  - Paralysis [Unknown]

NARRATIVE: CASE EVENT DATE: 20251003
